FAERS Safety Report 9226887 (Version 1)
Quarter: 2013Q2

REPORT INFORMATION
  Report Type: Spontaneous
  Country: US (occurrence: US)
  Receive Date: 20130412
  Receipt Date: 20130412
  Transmission Date: 20140414
  Serious: No
  Sender: FDA-Public Use
  Company Number: US-JNJFOC-20130312234

PATIENT
  Age: 55 Year
  Sex: Female

DRUGS (3)
  1. INVEGA SUSTENNA [Suspect]
     Indication: PRODUCT USED FOR UNKNOWN INDICATION
     Route: 030
     Dates: start: 201212
  2. CYMBALTA [Concomitant]
     Route: 065
  3. RISPERDAL [Concomitant]
     Route: 048

REACTIONS (1)
  - Drug dose omission [Not Recovered/Not Resolved]
